FAERS Safety Report 7287655-1 (Version None)
Quarter: 2011Q1

REPORT INFORMATION
  Report Type: 
  Country: None (occurrence: None)
  Receive Date: 20110208
  Receipt Date: 20110208
  Transmission Date: 20110831
  Serious: Yes (Hospitalization)
  Sender: FDA-Public Use
  Company Number: None

PATIENT
  Age: 66 Year
  Sex: Female
  Weight: 120.4754 kg

DRUGS (1)
  1. DIGOXIN [Suspect]
     Indication: ATRIAL FIBRILLATION

REACTIONS (13)
  - BLOOD PRESSURE INCREASED [None]
  - RESPIRATORY FAILURE [None]
  - TOXICITY TO VARIOUS AGENTS [None]
  - DIALYSIS [None]
  - HYPERKALAEMIA [None]
  - PNEUMONIA [None]
  - BRADYCARDIA [None]
  - VOMITING [None]
  - CONDITION AGGRAVATED [None]
  - NAUSEA [None]
  - CHRONIC OBSTRUCTIVE PULMONARY DISEASE [None]
  - RASH [None]
  - RENAL FAILURE ACUTE [None]
